FAERS Safety Report 9690256 (Version 3)
Quarter: 2014Q3

REPORT INFORMATION
  Report Type: Spontaneous
  Country: US (occurrence: US)
  Receive Date: 20131115
  Receipt Date: 20140710
  Transmission Date: 20150326
  Serious: No
  Sender: FDA-Public Use
  Company Number: US-BAYER-2013-137049

PATIENT
  Age: 25 Year
  Sex: Female

DRUGS (1)
  1. MIRENA [Suspect]
     Active Substance: LEVONORGESTREL
     Indication: CONTRACEPTION
     Dosage: 20 MCG/24HR, CONT
     Route: 015
     Dates: start: 201002

REACTIONS (3)
  - Pain [Not Recovered/Not Resolved]
  - Pelvic cyst [None]
  - Polycystic ovaries [Not Recovered/Not Resolved]

NARRATIVE: CASE EVENT DATE: 201205
